FAERS Safety Report 7496069-0 (Version None)
Quarter: 2011Q2

REPORT INFORMATION
  Report Type: 
  Country: None (occurrence: None)
  Receive Date: 20110523
  Receipt Date: 20110519
  Transmission Date: 20111010
  Serious: Yes (Death, Other)
  Sender: FDA-Public Use
  Company Number: VE-PFIZER INC-2010133821

PATIENT
  Age: 17 Year
  Sex: Male

DRUGS (1)
  1. GENOTROPIN [Suspect]
     Indication: GROWTH HORMONE DEFICIENCY
     Dosage: 5.3 MG, 1X/DAY
     Route: 058
     Dates: start: 20100101, end: 20101101

REACTIONS (4)
  - RESPIRATORY ARREST [None]
  - PANCREATITIS [None]
  - NEPHROLITHIASIS [None]
  - RENAL FAILURE [None]
